FAERS Safety Report 8849804 (Version 3)
Quarter: 2014Q2

REPORT INFORMATION
  Report Type: Report from Study
  Country: JP (occurrence: JP)
  Receive Date: 20121019
  Receipt Date: 20140602
  Transmission Date: 20141212
  Serious: Yes (Other)
  Sender: FDA-Public Use
  Company Number: JP-JNJFOC-20121007912

PATIENT
  Age: 28 Year
  Sex: Male
  Weight: 69 kg

DRUGS (4)
  1. PREZISTA [Suspect]
     Indication: HIV INFECTION
     Route: 048
     Dates: start: 20110523, end: 20110808
  2. RITONAVIR [Suspect]
     Indication: HIV INFECTION
     Route: 048
     Dates: start: 20110523, end: 20110808
  3. EMTRICITABINE W/TENOFOVIR DISOPROXIL FUMARATE [Concomitant]
     Indication: HIV INFECTION
     Route: 048
     Dates: start: 20110523
  4. SULFAMETHOXAZOLE + TRIMETHOPRIM [Concomitant]
     Indication: PROPHYLAXIS
     Route: 048
     Dates: start: 20110404, end: 20110725

REACTIONS (1)
  - Hepatic function abnormal [Recovered/Resolved]
